FAERS Safety Report 6240314-6 (Version None)
Quarter: 2009Q2

REPORT INFORMATION
  Report Type: 
  Country: None (occurrence: None)
  Receive Date: 20090623
  Receipt Date: 20080703
  Transmission Date: 20091009
  Serious: No
  Sender: FDA-Public Use
  Company Number: US-ASTRAZENECA-2008UW13371

PATIENT
  Age: 61 Year
  Sex: Female
  Weight: 56.7 kg

DRUGS (7)
  1. PULMICORT-100 [Suspect]
     Indication: BRONCHITIS CHRONIC
     Route: 055
  2. TEGRETOL [Concomitant]
  3. XANAX [Concomitant]
  4. WELLBUTRIN [Concomitant]
  5. TIGAN [Concomitant]
  6. VITAMINS [Concomitant]
  7. NASAL SPRAY [Concomitant]

REACTIONS (2)
  - CHEST DISCOMFORT [None]
  - DRUG INEFFECTIVE [None]
